FAERS Safety Report 14314370 (Version 1)
Quarter: 2017Q4

REPORT INFORMATION
  Report Type: Spontaneous
  Country: US (occurrence: US)
  Receive Date: 20171221
  Receipt Date: 20171221
  Transmission Date: 20180321
  Serious: Yes (Hospitalization)
  Sender: FDA-Public Use
  Company Number: US-REGULIS-2037578

PATIENT
  Age: 21 Year
  Sex: Female

DRUGS (18)
  1. CONTRACEPTIVE [Concomitant]
     Active Substance: UNSPECIFIED INGREDIENT
  2. PROPOFOL. [Concomitant]
     Active Substance: PROPOFOL
  3. PROPOFOL. [Concomitant]
     Active Substance: PROPOFOL
  4. REMIFENTANIL [Concomitant]
     Active Substance: REMIFENTANIL
  5. PHENYLEPHRINE [Concomitant]
     Active Substance: PHENYLEPHRINE\PHENYLEPHRINE HYDROCHLORIDE
  6. DESMOPRESSIN [Concomitant]
     Active Substance: DESMOPRESSIN
  7. ASPIRIN. [Concomitant]
     Active Substance: ASPIRIN
  8. PHENYLEPHRINE [Concomitant]
     Active Substance: PHENYLEPHRINE\PHENYLEPHRINE HYDROCHLORIDE
  9. LIDOCAINE. [Concomitant]
     Active Substance: LIDOCAINE
  10. ROCURONIUM [Concomitant]
     Active Substance: ROCURONIUM BROMIDE
  11. METHYLENE BLUE. [Suspect]
     Active Substance: METHYLENE BLUE
     Indication: BLOOD PRESSURE SYSTOLIC DECREASED
     Route: 042
  12. SEVOFLURANE. [Concomitant]
     Active Substance: SEVOFLURANE
  13. LEVETIRACETAM. [Concomitant]
     Active Substance: LEVETIRACETAM
  14. BUSPIRONE [Concomitant]
     Active Substance: BUSPIRONE HYDROCHLORIDE
  15. VENLAFAXINE [Concomitant]
     Active Substance: VENLAFAXINE HYDROCHLORIDE
  16. MIDODRINE [Concomitant]
     Active Substance: MIDODRINE
  17. EPHEDRINE. [Concomitant]
     Active Substance: EPHEDRINE
  18. VASOPRESSIN. [Concomitant]
     Active Substance: VASOPRESSIN

REACTIONS (2)
  - Off label use [Recovered/Resolved]
  - Serotonin syndrome [Recovered/Resolved]
